FAERS Safety Report 4597155-5 (Version None)
Quarter: 2005Q1

REPORT INFORMATION
  Report Type: 
  Country: None (occurrence: None)
  Receive Date: 20050302
  Receipt Date: 20050225
  Transmission Date: 20050727
  Serious: Yes (Death)
  Sender: FDA-Public Use
  Company Number: 05-02-0295

PATIENT
  Age: 46 Year
  Sex: Male

DRUGS (1)
  1. CLOZAPINE [Suspect]
     Dosage: 350-600MG QD ORAL
     Route: 048
     Dates: start: 20000101, end: 20050201

REACTIONS (1)
  - MYOCARDIAL INFARCTION [None]
